FAERS Safety Report 9536453 (Version 1)
Quarter: 2013Q2

REPORT INFORMATION
  Report Type: Spontaneous
  Country: US (occurrence: None)
  Receive Date: 20130503
  Receipt Date: 20130503
  Transmission Date: 20140414
  Serious: No
  Sender: FDA-Public Use
  Company Number: 1000043591

PATIENT
  Sex: Female

DRUGS (1)
  1. DALIRESP [Suspect]

REACTIONS (5)
  - Anxiety [None]
  - Tremor [None]
  - Nausea [None]
  - Headache [None]
  - Dizziness [None]
